FAERS Safety Report 7404972-2 (Version None)
Quarter: 2011Q2

REPORT INFORMATION
  Report Type: 
  Country: None (occurrence: None)
  Receive Date: 20110411
  Receipt Date: 20100728
  Transmission Date: 20111010
  Serious: No
  Sender: FDA-Public Use
  Company Number: US-KINGPHARMUSA00001-K201000942

PATIENT
  Age: 16 Year
  Sex: Male

DRUGS (1)
  1. THROMBIN-JMI [Suspect]
     Indication: OPERATIVE HAEMORRHAGE
     Dosage: UNK, SINGLE
     Dates: start: 20100728, end: 20100728

REACTIONS (1)
  - DRUG INEFFECTIVE [None]
